FAERS Safety Report 7997675 (Version 6)
Quarter: 2014Q2

REPORT INFORMATION
  Report Type: Report from Study
  Country: DE (occurrence: DE)
  Receive Date: 20110620
  Receipt Date: 20140513
  Transmission Date: 20141212
  Serious: Yes (Hospitalization, Other)
  Sender: FDA-Public Use
  Company Number: PHHY2011DE50130

PATIENT
  Age: 71 Year
  Sex: Male
  Weight: 122 kg

DRUGS (19)
  1. AMN107 [Suspect]
     Indication: CHRONIC MYELOID LEUKAEMIA
     Dosage: 150 MG, QID
     Route: 048
     Dates: start: 20110526, end: 20110607
  2. AMN107 [Suspect]
     Dosage: 800 MG, PER DAY
     Route: 048
  3. AMN107 [Suspect]
     Dosage: 400 MG, PER DAY
     Route: 048
     Dates: start: 20111013, end: 20111108
  4. AMN107 [Suspect]
     Dosage: 600 MG, PER DAY
     Route: 048
     Dates: start: 20111109
  5. RAMIPRIL [Concomitant]
     Dosage: 5 MG, QD
     Route: 048
  6. ALLOPURINOL [Concomitant]
     Dosage: 0.5 MG, QD
     Route: 048
  7. METOPROLOL [Concomitant]
     Indication: CARDIAC DISORDER
     Dosage: 100 MG, PER DAY
     Route: 048
  8. SPIRONOLACTONE [Concomitant]
     Dosage: 3 DF, QD
     Route: 048
  9. FUROSEMIDE [Concomitant]
     Indication: LUNG DISORDER
     Dosage: 3 DF, QD
  10. SYMBICORT [Concomitant]
     Dosage: 2 DF, DAILY
     Route: 055
  11. SIMVASTATIN [Concomitant]
     Indication: CARDIAC DISORDER
     Dosage: 1 DF, QD
     Route: 048
  12. XIPAMIDE [Concomitant]
     Dosage: 1 DF, QD
  13. CIPROBAY                           /01429801/ [Concomitant]
     Dates: start: 20121018
  14. TILIDIN [Concomitant]
  15. ASS [Concomitant]
     Indication: CARDIAC DISORDER
     Dosage: 1 DF, QD
     Route: 048
  16. NOVALGIN//METAMIZOLE SODIUM [Concomitant]
  17. PANTOPRAZOL [Concomitant]
  18. TRIMIPRAMIN AL//TRIMIPRAMINE MALEATE [Concomitant]
  19. METRONIDAZOLE [Concomitant]

REACTIONS (17)
  - Hypertrophy [Recovered/Resolved]
  - Gamma-glutamyltransferase increased [Recovered/Resolved]
  - Pain [Recovered/Resolved]
  - Local swelling [Recovered/Resolved]
  - Electrocardiogram QT prolonged [Recovered/Resolved]
  - Congestive cardiomyopathy [Recovered/Resolved]
  - Cardiac failure [Recovered/Resolved]
  - Oedema peripheral [Recovered/Resolved]
  - Dyspnoea [Recovered/Resolved]
  - Cough [Recovered/Resolved]
  - Palpitations [Recovered/Resolved]
  - Oedema [Recovered/Resolved]
  - Tachycardia [Recovered/Resolved]
  - Hyperhidrosis [Recovered/Resolved]
  - Atrial fibrillation [Recovered/Resolved]
  - Chest pain [Recovered/Resolved]
  - Renal failure chronic [Recovering/Resolving]
